FAERS Safety Report 25646310 (Version 4)
Quarter: 2025Q3

REPORT INFORMATION
  Report Type: Spontaneous
  Country: GB (occurrence: GB)
  Receive Date: 20250805
  Receipt Date: 20250912
  Transmission Date: 20251021
  Serious: Yes (Life-Threatening, Hospitalization, Other)
  Sender: MYLAN
  Company Number: GB-MYLANLABS-2025M1051135

PATIENT
  Sex: Female

DRUGS (8)
  1. CLOZARIL [Suspect]
     Active Substance: CLOZAPINE
     Indication: Schizophrenia
     Dosage: UNK, TID (75MG OM 150MG MID-DAY 200MG AT NIGHT)
     Dates: start: 20010701
  2. CLOZARIL [Suspect]
     Active Substance: CLOZAPINE
     Dosage: 450 MILLIGRAM, QD (REDUCED DOSE)
     Dates: start: 202311
  3. CLOZARIL [Suspect]
     Active Substance: CLOZAPINE
     Dosage: 425 MILLIGRAM, QD (REDUCED DOSE)
     Dates: start: 202411
  4. PREGABALIN [Concomitant]
     Active Substance: PREGABALIN
     Dosage: UNK, TID (75MG OM 75MG MID-DAY AND 150MG AT NIGHT)
  5. ATORVASTATIN [Concomitant]
     Active Substance: ATORVASTATIN
     Dosage: 40 MILLIGRAM, PM (ON, ONCE NIGHT)
  6. FOLIC ACID [Concomitant]
     Active Substance: FOLIC ACID
     Dosage: 5 MILLIGRAM, QD (ONCE A DAY)
  7. ALBUTEROL [Concomitant]
     Active Substance: ALBUTEROL
  8. LOPERAMIDE [Concomitant]
     Active Substance: LOPERAMIDE
     Dosage: 2 MILLIGRAM, BID

REACTIONS (24)
  - Colon cancer [Recovering/Resolving]
  - Fall [Unknown]
  - Rib fracture [Unknown]
  - Craniofacial fracture [Unknown]
  - Gingival injury [Unknown]
  - Lip injury [Unknown]
  - Psychotic symptom [Recovering/Resolving]
  - Differential white blood cell count abnormal [Unknown]
  - Therapeutic product effect incomplete [Unknown]
  - White blood cell count increased [Recovered/Resolved]
  - Haemoglobin decreased [Not Recovered/Not Resolved]
  - Platelet count increased [Recovered/Resolved]
  - Red blood cell count decreased [Not Recovered/Not Resolved]
  - Haematocrit decreased [Not Recovered/Not Resolved]
  - Red cell distribution width increased [Not Recovered/Not Resolved]
  - Neutrophil count increased [Recovering/Resolving]
  - Monocyte count increased [Recovered/Resolved]
  - Residual symptom [Recovering/Resolving]
  - C-reactive protein increased [Unknown]
  - COVID-19 [Unknown]
  - Off label use [Unknown]
  - Lymphocyte count decreased [Unknown]
  - Antipsychotic drug level increased [Unknown]
  - Pleural effusion [Unknown]

NARRATIVE: CASE EVENT DATE: 20250401
